FAERS Safety Report 8185722-1 (Version None)
Quarter: 2012Q1

REPORT INFORMATION
  Report Type: 
  Country: None (occurrence: None)
  Receive Date: 20120305
  Receipt Date: 20120227
  Transmission Date: 20120608
  Serious: Yes (Other)
  Sender: FDA-Public Use
  Company Number: BR-PFIZER INC-2012052060

PATIENT
  Age: 56 Year
  Sex: Female

DRUGS (5)
  1. CITALOPRAM [Concomitant]
     Indication: ANTIDEPRESSANT THERAPY
     Dosage: ONE TABLET AT NIGHT
     Dates: start: 20110901
  2. RIVOTRIL [Suspect]
     Dosage: UNK
  3. OLCADIL [Concomitant]
     Indication: SLEEP DISORDER
     Dosage: ONE TABLET DAILY
     Dates: start: 20111101
  4. MACRODANTINA [Concomitant]
     Indication: POLLAKIURIA
     Dosage: ONE TABLET DAILY
     Dates: start: 20110801
  5. LYRICA [Suspect]
     Indication: NEUROPATHY PERIPHERAL
     Dosage: 75 MG, 2X/DAY
     Route: 048

REACTIONS (8)
  - TONGUE PARALYSIS [None]
  - SENSORY LOSS [None]
  - PROCEDURAL COMPLICATION [None]
  - MYALGIA [None]
  - FEELING ABNORMAL [None]
  - SOMNOLENCE [None]
  - DECREASED ACTIVITY [None]
  - HYPOTONIA [None]
